FAERS Safety Report 4354712-9 (Version None)
Quarter: 2004Q2

REPORT INFORMATION
  Report Type: 
  Country: None (occurrence: None)
  Receive Date: 20040503
  Receipt Date: 20040405
  Transmission Date: 20050107
  Serious: Yes (Other)
  Sender: FDA-Public Use
  Company Number: 040012

PATIENT
  Age: 68 Year
  Sex: Male

DRUGS (3)
  1. NULYTELY-FLAVORED [Suspect]
     Indication: COLONOSCOPY
     Dosage: 4 LITERS PO
     Route: 048
     Dates: start: 20040404
  2. LIPITOR [Concomitant]
  3. ASPIRIN [Concomitant]

REACTIONS (4)
  - HYPERSENSITIVITY [None]
  - SWELLING FACE [None]
  - SWOLLEN TONGUE [None]
  - THROAT TIGHTNESS [None]
